FAERS Safety Report 4975503-1 (Version None)
Quarter: 2006Q2

REPORT INFORMATION
  Report Type: 
  Country: None (occurrence: None)
  Receive Date: 20060410
  Receipt Date: 20060323
  Transmission Date: 20061013
  Serious: Yes (Life-Threatening, Hospitalization)
  Sender: FDA-Public Use
  Company Number: GXKR2006JP01304

PATIENT
  Age: 51 Year
  Sex: Male

DRUGS (5)
  1. ALLOPURINOL [Suspect]
     Indication: SUICIDE ATTEMPT
     Dosage: 1200 MG, ONCE/SINGLE,
  2. DOXAZOSIN MESYLATE [Suspect]
     Dosage: 52 MG, QD,
  3. NIFEDIPINE [Suspect]
     Indication: SUICIDE ATTEMPT
     Dosage: 520 MG, QD,
  4. IMIDAPRIL HYDROCHLORIDE (IMIDAPRIL HYDROCHLORIDE) [Suspect]
     Indication: SUICIDE ATTEMPT
     Dosage: 120 MG, QD,
  5. MULTIPLE PSYCHOTROPIC AGENTS () [Suspect]
     Indication: SUICIDE ATTEMPT

REACTIONS (7)
  - CIRCULATORY COLLAPSE [None]
  - COMA [None]
  - DRUG TOXICITY [None]
  - MULTIPLE DRUG OVERDOSE INTENTIONAL [None]
  - SHOCK [None]
  - SUICIDE ATTEMPT [None]
  - THERAPY NON-RESPONDER [None]
